FAERS Safety Report 15164506 (Version 1)
Quarter: 2018Q3

REPORT INFORMATION
  Report Type: Spontaneous
  Country: TR (occurrence: TR)
  Receive Date: 20180719
  Receipt Date: 20180719
  Transmission Date: 20181010
  Serious: Yes (Hospitalization, Other)
  Sender: FDA-Public Use
  Company Number: TR-INVENTIA-000239

PATIENT
  Age: 70 Year
  Sex: Female

DRUGS (4)
  1. GLICLAZIDE [Concomitant]
     Active Substance: GLICLAZIDE
  2. ROSUVASTATIN/ROSUVASTATIN CALCIUM [Concomitant]
  3. METFORMIN [Suspect]
     Active Substance: METFORMIN HYDROCHLORIDE
     Indication: PRODUCT USED FOR UNKNOWN INDICATION
     Dosage: APPROXIMATELY 35 G OF METFORMIN AT ONCE
  4. ESCITALOPRAM [Concomitant]
     Active Substance: ESCITALOPRAM OXALATE

REACTIONS (4)
  - Toxicity to various agents [Recovering/Resolving]
  - Metabolic acidosis [Recovering/Resolving]
  - Suicide attempt [Unknown]
  - Cardiac arrest [Recovering/Resolving]
